FAERS Safety Report 24151609 (Version 1)
Quarter: 2024Q3

REPORT INFORMATION
  Report Type: Spontaneous
  Country: US (occurrence: US)
  Receive Date: 20240730
  Receipt Date: 20240730
  Transmission Date: 20241016
  Serious: No
  Sender: PERRIGO
  Company Number: US-PERRIGO-24US000584

PATIENT
  Age: 89 Year
  Sex: Female
  Weight: 60.771 kg

DRUGS (4)
  1. LORATADINE [Suspect]
     Active Substance: LORATADINE
     Indication: Sneezing
     Dosage: 10 MG, SINGLE
     Route: 048
     Dates: start: 20240116, end: 20240116
  2. LORATADINE [Suspect]
     Active Substance: LORATADINE
     Indication: Pruritus
  3. LORATADINE [Suspect]
     Active Substance: LORATADINE
     Indication: Seasonal allergy
  4. LORATADINE [Suspect]
     Active Substance: LORATADINE
     Indication: Dust allergy

REACTIONS (2)
  - Somnolence [Recovered/Resolved]
  - Expired product administered [Recovered/Resolved]

NARRATIVE: CASE EVENT DATE: 20240116
